FAERS Safety Report 9491031 (Version 2)
Quarter: 2013Q4

REPORT INFORMATION
  Report Type: Spontaneous
  Country: US (occurrence: US)
  Receive Date: 20130830
  Receipt Date: 20131003
  Transmission Date: 20140711
  Serious: No
  Sender: FDA-Public Use
  Company Number: US-PFIZER INC-2013249284

PATIENT
  Sex: Male

DRUGS (2)
  1. LYRICA [Suspect]
     Indication: CEREBROVASCULAR ACCIDENT
     Dosage: 75 MG, UNK
     Route: 048
     Dates: start: 2013, end: 2013
  2. LYRICA [Suspect]
     Dosage: UNK
     Dates: start: 2013, end: 2013

REACTIONS (3)
  - Off label use [Unknown]
  - Drug ineffective for unapproved indication [Unknown]
  - Musculoskeletal stiffness [Unknown]
